FAERS Safety Report 9178337 (Version 1)
Quarter: 2012Q4

REPORT INFORMATION
  Report Type: 
  Country: CH (occurrence: CH)
  Receive Date: 20121029
  Receipt Date: 20121029
  Transmission Date: 20130627
  Serious: Yes (Hospitalization, Other)
  Sender: FDA-Public Use
  Company Number: CH-PFIZER INC-2012267455

PATIENT
  Age: 62 Year
  Sex: Female
  Weight: 60 kg

DRUGS (5)
  1. NORPACE CR [Suspect]
     Indication: CARDIOMYOPATHY
     Dosage: 150 mg, 2x/day
     Route: 048
     Dates: start: 20120807
  2. CRESTOR [Suspect]
     Indication: HYPERLIPIDAEMIA
     Dosage: 10 mg, 1x/day
     Route: 048
     Dates: start: 20120708, end: 20120907
  3. BELOC ZOK [Concomitant]
     Dosage: 25 mg, UNK
     Route: 048
  4. ESTRADOT [Concomitant]
     Dosage: 25 ug/24h, 2x/week
     Route: 003
  5. UTROGESTAN [Concomitant]
     Dosage: 100 mg, 1x/day
     Route: 048

REACTIONS (2)
  - Blood creatine phosphokinase increased [Not Recovered/Not Resolved]
  - Myalgia [Not Recovered/Not Resolved]
